FAERS Safety Report 10136018 (Version 2)
Quarter: 2015Q4

REPORT INFORMATION
  Report Type: Spontaneous
  Country: US (occurrence: US)
  Receive Date: 20140429
  Receipt Date: 20151102
  Transmission Date: 20160304
  Serious: No
  Sender: FDA-Public Use
  Company Number: US-BIOGENIDEC-2014BI038320

PATIENT
  Age: 30 Year
  Sex: Female

DRUGS (3)
  1. TYSABRI [Suspect]
     Active Substance: NATALIZUMAB
     Indication: MULTIPLE SCLEROSIS
     Route: 042
     Dates: start: 2012
  2. TYSABRI [Suspect]
     Active Substance: NATALIZUMAB
     Indication: MULTIPLE SCLEROSIS
     Route: 042
     Dates: start: 20120120
  3. TYSABRI [Suspect]
     Active Substance: NATALIZUMAB
     Indication: MULTIPLE SCLEROSIS
     Route: 042
     Dates: start: 20080317, end: 20101117

REACTIONS (4)
  - Blood iron decreased [Unknown]
  - Inappropriate schedule of drug administration [Not Recovered/Not Resolved]
  - Blood folate decreased [Unknown]
  - Vitamin B12 decreased [Unknown]

NARRATIVE: CASE EVENT DATE: 2012
